FAERS Safety Report 15308897 (Version 1)
Quarter: 2018Q4

REPORT INFORMATION
  Report Type: Other
  Country: IT (occurrence: IT)
  Receive Date: 20180823
  Receipt Date: 20180823
  Transmission Date: 20190204
  Serious: Yes (Other)
  Sender: FDA-Public Use
  Company Number: IT-MACLEODS PHARMACEUTICALS US LTD-MAC2018016121

PATIENT

DRUGS (7)
  1. SODIUM HYDROGEN CARBONATE, ALGINIC ACID, ALUMINUM, MAGNESIUM [Concomitant]
     Indication: DYSPEPSIA
     Dosage: UNK, 500 MG/10 ML + 267 MG/ 10 ML
     Route: 048
  2. BLOPRESID [Concomitant]
     Active Substance: CANDESARTAN CILEXETIL\HYDROCHLOROTHIAZIDE
     Indication: HYPERTENSION
     Dosage: UNK
     Route: 065
  3. PEPTAZOL [Concomitant]
     Active Substance: PANTOPRAZOLE SODIUM
     Indication: GASTROOESOPHAGEAL REFLUX PROPHYLAXIS
     Dosage: UNK, 20 MG
     Route: 048
  4. LEVOFLOXACIN. [Suspect]
     Active Substance: LEVOFLOXACIN
     Indication: SINUSITIS
     Dosage: 1 DOSAGE FORM, 1 CYCLE, FILM COATED TABLET, QCY
     Route: 048
     Dates: start: 20180629, end: 20180703
  5. LERCANIDIPINE [Concomitant]
     Active Substance: LERCANIDIPINE
     Indication: HYPERTENSION
     Dosage: UNK
     Route: 065
  6. LEVOPRAID (LEVOSULPIRIDE) [Interacting]
     Active Substance: LEVOSULPIRIDE
     Indication: DYSPEPSIA
     Dosage: 1 DOSAGE FORM, PRN, AS NECESSARY
     Route: 048
  7. ALMARYTM [Interacting]
     Active Substance: FLECAINIDE ACETATE
     Indication: ARRHYTHMIA
     Dosage: 1 DOSAGE FORM, QD
     Route: 048

REACTIONS (4)
  - Drug interaction [Recovering/Resolving]
  - Hypertension [Recovering/Resolving]
  - Tachycardia [Recovering/Resolving]
  - Ventricular extrasystoles [Recovering/Resolving]

NARRATIVE: CASE EVENT DATE: 20180703
